FAERS Safety Report 15793442 (Version 1)
Quarter: 2019Q1

REPORT INFORMATION
  Report Type: Spontaneous
  Country: US (occurrence: US)
  Receive Date: 20190104
  Receipt Date: 20190104
  Transmission Date: 20190417
  Serious: Yes (Hospitalization)
  Sender: FDA-Public Use
  Company Number: None

PATIENT
  Age: 22 Year
  Sex: Female
  Weight: 65.25 kg

DRUGS (7)
  1. FLUCONAZOLE. [Concomitant]
     Active Substance: FLUCONAZOLE
  2. ONDANSETRON. [Concomitant]
     Active Substance: ONDANSETRON
  3. NORETHINDRONE. [Concomitant]
     Active Substance: NORETHINDRONE
  4. BLINCYTO [Suspect]
     Active Substance: BLINATUMOMAB
     Indication: ACUTE LYMPHOCYTIC LEUKAEMIA
     Dosage: ?          QUANTITY:1 IV;OTHER FREQUENCY:24 HOURS CONTINUOU;?
     Route: 042
  5. FERROUS SULFATE. [Concomitant]
     Active Substance: FERROUS SULFATE
  6. GABAPENTIN. [Concomitant]
     Active Substance: GABAPENTIN
  7. PANTOPRAZOLE SODIUM. [Concomitant]
     Active Substance: PANTOPRAZOLE SODIUM

REACTIONS (13)
  - Fatigue [None]
  - Cough [None]
  - Disorientation [None]
  - Blood potassium decreased [None]
  - Dizziness [None]
  - Arthralgia [None]
  - Nausea [None]
  - Chills [None]
  - Hypoaesthesia [None]
  - Confusional state [None]
  - Pyrexia [None]
  - Headache [None]
  - Dysarthria [None]

NARRATIVE: CASE EVENT DATE: 20190101
